FAERS Safety Report 6762970-6 (Version None)
Quarter: 2010Q2

REPORT INFORMATION
  Report Type: 
  Country: None (occurrence: None)
  Receive Date: 20100609
  Receipt Date: 20100331
  Transmission Date: 20101027
  Serious: Yes (Other)
  Sender: FDA-Public Use
  Company Number: US-BAYER-200922999NA

PATIENT
  Age: 86 Year
  Sex: Male

DRUGS (4)
  1. BETAPACE AF [Suspect]
     Indication: ATRIAL FIBRILLATION
     Dosage: TOTAL DAILY DOSE: 320 MG
     Route: 048
     Dates: start: 20090101
  2. BETAPACE AF [Suspect]
     Dates: start: 19960101, end: 20080101
  3. SOTALOL [Suspect]
     Indication: ATRIAL FIBRILLATION
     Dates: start: 20080101
  4. LANOXIN [Concomitant]

REACTIONS (3)
  - ATRIAL FIBRILLATION [None]
  - DRUG INEFFECTIVE [None]
  - INGUINAL HERNIA REPAIR [None]
